FAERS Safety Report 15884631 (Version 2)
Quarter: 2019Q1

REPORT INFORMATION
  Report Type: Spontaneous
  Country: US (occurrence: US)
  Receive Date: 20190129
  Receipt Date: 20190302
  Transmission Date: 20190417
  Serious: No
  Sender: FDA-Public Use
  Company Number: US-TEVA-2019-US-995009

PATIENT
  Age: 2 Year
  Sex: Male

DRUGS (1)
  1. AMOXICILLIN ORAL SUSP [Suspect]
     Active Substance: AMOXICILLIN
     Dosage: 400 MG/5 ML?CUT HER CHILD^S DOSE IN HALF AS 6.5 TO 5 OR 4MGS
     Route: 065
     Dates: start: 201812

REACTIONS (4)
  - Abnormal behaviour [Unknown]
  - Sleep disorder [Unknown]
  - Incorrect dose administered [Unknown]
  - Psychomotor hyperactivity [Unknown]

NARRATIVE: CASE EVENT DATE: 201812
